FAERS Safety Report 6138149-8 (Version None)
Quarter: 2009Q1

REPORT INFORMATION
  Report Type: 
  Country: None (occurrence: None)
  Receive Date: 20090327
  Receipt Date: 20090323
  Transmission Date: 20090719
  Serious: Yes (Other)
  Sender: FDA-Public Use
  Company Number: 2009SP000586

PATIENT
  Sex: Female

DRUGS (6)
  1. MIRALAX [Suspect]
     Indication: CONSTIPATION
     Dosage: QD; PO
     Route: 048
     Dates: start: 20090101, end: 20090102
  2. NORVASC [Concomitant]
  3. LIPITOR [Concomitant]
  4. JANUVIA [Concomitant]
  5. RAMIPRIL [Concomitant]
  6. LOPRESSOR [Concomitant]

REACTIONS (2)
  - ATRIAL FIBRILLATION [None]
  - EXTRASYSTOLES [None]
